FAERS Safety Report 7808148-6 (Version None)
Quarter: 2011Q4

REPORT INFORMATION
  Report Type: 
  Country: None (occurrence: None)
  Receive Date: 20111011
  Receipt Date: 20110926
  Transmission Date: 20120403
  Serious: Yes (Hospitalization)
  Sender: FDA-Public Use
  Company Number: JP-ROCHE-779811

PATIENT
  Sex: Female

DRUGS (9)
  1. ACTEMRA [Suspect]
     Route: 041
     Dates: start: 20091124, end: 20091124
  2. ACTEMRA [Suspect]
     Route: 041
     Dates: start: 20100119, end: 20100119
  3. ACTEMRA [Suspect]
     Route: 041
     Dates: start: 20100511, end: 20100511
  4. ACTEMRA [Suspect]
     Indication: RHEUMATOID ARTHRITIS
     Route: 041
     Dates: start: 20090630, end: 20090630
  5. ACTEMRA [Suspect]
     Route: 041
     Dates: start: 20090825, end: 20090825
  6. ACTEMRA [Suspect]
     Route: 041
     Dates: start: 20090929, end: 20090929
  7. RHEUMATREX [Concomitant]
     Route: 048
  8. ACTEMRA [Suspect]
     Route: 041
     Dates: start: 20090728, end: 20090728
  9. ACTEMRA [Suspect]
     Route: 041
     Dates: start: 20100316, end: 20100316

REACTIONS (1)
  - CEREBRAL HAEMORRHAGE [None]
